FAERS Safety Report 6247652-1 (Version None)
Quarter: 2009Q2

REPORT INFORMATION
  Report Type: 
  Country: None (occurrence: None)
  Receive Date: 20090626
  Receipt Date: 20090619
  Transmission Date: 20091009
  Serious: Yes (Hospitalization)
  Sender: FDA-Public Use
  Company Number: FR-GILEAD-2009-0022691

PATIENT
  Sex: Female

DRUGS (7)
  1. TRUVADA [Suspect]
     Indication: HIV INFECTION
     Route: 048
     Dates: end: 20090501
  2. KALETRA [Concomitant]
  3. COPEGUS [Concomitant]
  4. PEGASYS [Concomitant]
  5. MANTADIX [Concomitant]
  6. NEORECORMON [Concomitant]
  7. ERYTHROPOIETINE [Concomitant]
     Indication: HEPATITIS C
     Dates: start: 20080101

REACTIONS (3)
  - FANCONI SYNDROME ACQUIRED [None]
  - HAEMOLYTIC ANAEMIA [None]
  - RENAL FAILURE ACUTE [None]
